FAERS Safety Report 5004157-3 (Version None)
Quarter: 2006Q2

REPORT INFORMATION
  Report Type: 
  Country: None (occurrence: None)
  Receive Date: 20060517
  Receipt Date: 20060509
  Transmission Date: 20061013
  Serious: Yes (Other)
  Sender: FDA-Public Use
  Company Number: JP-JNJFOC-20060502606

PATIENT
  Sex: Male

DRUGS (8)
  1. ITRIZOLE [Suspect]
     Indication: ANTIFUNGAL PROPHYLAXIS
     Route: 048
     Dates: start: 20050922, end: 20050926
  2. LEUSTATIN [Suspect]
     Dates: start: 20050914, end: 20050920
  3. SULFAMETHOXAZOLE + TRIMETHOPRIM [Suspect]
     Route: 048
     Dates: start: 20050920, end: 20050923
  4. SULFAMETHOXAZOLE + TRIMETHOPRIM [Suspect]
     Route: 048
     Dates: start: 20050920, end: 20050923
  5. LEVOFLOXACIN [Suspect]
     Indication: INFECTION PROPHYLAXIS
     Route: 048
     Dates: start: 20050920, end: 20050922
  6. CEFTAZIDINE [Suspect]
     Indication: INFECTION
     Dates: start: 20050922, end: 20050924
  7. VANCOMYCIN HYDROCHLORIDE [Suspect]
     Indication: INFECTION
     Dates: start: 20050924, end: 20050926
  8. MEROPENEM TRIHYDRATE [Suspect]
     Indication: INFECTION
     Dates: start: 20050926, end: 20051003

REACTIONS (10)
  - ALANINE AMINOTRANSFERASE INCREASED [None]
  - ANAEMIA [None]
  - BLOOD ALKALINE PHOSPHATASE INCREASED [None]
  - BLOOD LACTATE DEHYDROGENASE INCREASED [None]
  - GAMMA-GLUTAMYLTRANSFERASE INCREASED [None]
  - HEPATIC ENZYME INCREASED [None]
  - INFECTION [None]
  - PLATELET COUNT DECREASED [None]
  - RASH [None]
  - WHITE BLOOD CELL COUNT DECREASED [None]
